FAERS Safety Report 10955877 (Version 1)
Quarter: 2015Q1

REPORT INFORMATION
  Report Type: Spontaneous
  Country: US (occurrence: None)
  Receive Date: 20150309
  Receipt Date: 20150309
  Transmission Date: 20150721
  Serious: Yes (Other)
  Sender: FDA-Public Use
  Company Number: A14-0064F

PATIENT
  Age: 27 Year
  Sex: Female

DRUGS (2)
  1. B: SO GRASS, RW, C [Suspect]
     Active Substance: ALLERGENIC EXTRACTS
     Indication: IMMUNE SYSTEM DISORDER
     Dates: start: 20141009
  2. A:TREE #11, D, WD MX [Suspect]
     Active Substance: ALLERGENIC EXTRACTS
     Indication: IMMUNE SYSTEM DISORDER
     Dates: start: 20141009

REACTIONS (6)
  - Panic attack [None]
  - Dyspnoea [None]
  - Vomiting [None]
  - Nasal congestion [None]
  - Throat tightness [None]
  - Hypoxia [None]

NARRATIVE: CASE EVENT DATE: 20141009
